FAERS Safety Report 8912617 (Version 1)
Quarter: 2012Q4

REPORT INFORMATION
  Report Type: 
  Country: US (occurrence: US)
  Receive Date: 20121115
  Receipt Date: 20121115
  Transmission Date: 20130627
  Serious: No
  Sender: FDA-Public Use
  Company Number: US-PFIZER INC-2012281501

PATIENT
  Age: 35 Year
  Sex: Female
  Weight: 70.3 kg

DRUGS (1)
  1. ZYVOX [Suspect]
     Indication: POSTOPERATIVE INFECTION
     Dosage: 600 mg, 2x/day
     Dates: start: 201210, end: 20121102

REACTIONS (1)
  - Tongue discolouration [Not Recovered/Not Resolved]
